FAERS Safety Report 6620968-2 (Version None)
Quarter: 2010Q1

REPORT INFORMATION
  Report Type: 
  Country: None (occurrence: None)
  Receive Date: 20100308
  Receipt Date: 20100308
  Transmission Date: 20100710
  Serious: Yes (Life-Threatening, Hospitalization)
  Sender: FDA-Public Use
  Company Number: None

PATIENT
  Age: 56 Year
  Sex: Male

DRUGS (1)
  1. DILTIAZEM [Suspect]
     Indication: TACHYCARDIA
     Dosage: 15 MG ONCE IV
     Route: 042
     Dates: start: 20091230, end: 20091230

REACTIONS (3)
  - ANXIETY [None]
  - HYPERHIDROSIS [None]
  - HYPOTENSION [None]
